FAERS Safety Report 9715118 (Version 1)
Quarter: 2013Q4

REPORT INFORMATION
  Report Type: Spontaneous
  Country: KR (occurrence: KR)
  Receive Date: 20131126
  Receipt Date: 20131126
  Transmission Date: 20140711
  Serious: Yes (Other)
  Sender: FDA-Public Use
  Company Number: KR-009507513-1311KOR008459

PATIENT
  Sex: 0

DRUGS (1)
  1. FOSAMAX PLUS [Suspect]
     Dosage: UNK
     Route: 048
     Dates: start: 2007

REACTIONS (3)
  - Dental operation [Unknown]
  - Oral infection [Not Recovered/Not Resolved]
  - Dental implantation [Unknown]
